FAERS Safety Report 12556005 (Version 1)
Quarter: 2016Q3

REPORT INFORMATION
  Report Type: Spontaneous
  Country: CA (occurrence: CA)
  Receive Date: 20160714
  Receipt Date: 20160714
  Transmission Date: 20161109
  Serious: Yes (Other)
  Sender: FDA-Public Use
  Company Number: CA-JNJFOC-20160708507

PATIENT
  Age: 58 Year
  Sex: Female
  Weight: 77.11 kg

DRUGS (2)
  1. REMICADE [Suspect]
     Active Substance: INFLIXIMAB
     Indication: ARTHRITIS REACTIVE
     Dosage: THERAPY DURATION WAS 4 HOURS
     Route: 042
  2. REMICADE [Suspect]
     Active Substance: INFLIXIMAB
     Indication: ANKYLOSING SPONDYLITIS
     Dosage: THERAPY DURATION WAS 4 HOURS
     Route: 042

REACTIONS (7)
  - Product use issue [Unknown]
  - Malaise [Unknown]
  - Hot flush [Unknown]
  - Hypertension [Unknown]
  - Asthenia [Unknown]
  - Rash [Unknown]
  - Off label use [Unknown]
